FAERS Safety Report 7589252-7 (Version None)
Quarter: 2011Q3

REPORT INFORMATION
  Report Type: 
  Country: None (occurrence: None)
  Receive Date: 20110705
  Receipt Date: 20110629
  Transmission Date: 20111222
  Serious: Yes (Other)
  Sender: FDA-Public Use
  Company Number: IT-B.I. PHARMACEUTICALS,INC./RIDGEFIELD-2011-IT-00169IT

PATIENT
  Sex: Female

DRUGS (5)
  1. LACIPIL [Concomitant]
     Route: 048
     Dates: start: 20110308, end: 20110507
  2. VALSARTAN AND HYDROCHLOROTHIAZIDE [Suspect]
     Dosage: 1 POSOLOGIC UNIT
     Route: 048
     Dates: start: 20110308, end: 20110507
  3. INDAPAMIDE [Concomitant]
  4. CLONIDINE HCL [Suspect]
     Route: 062
     Dates: start: 20110505, end: 20110507
  5. PROPAFENONE HCL [Concomitant]
     Route: 048

REACTIONS (4)
  - ASTHENIA [None]
  - BRADYCARDIA [None]
  - HYPOTENSION [None]
  - CHEST DISCOMFORT [None]
